FAERS Safety Report 25324308 (Version 1)
Quarter: 2025Q2

REPORT INFORMATION
  Report Type: Spontaneous
  Country: US (occurrence: US)
  Receive Date: 20250516
  Receipt Date: 20250516
  Transmission Date: 20250717
  Serious: No
  Sender: TORRENT PHARMA INC.
  Company Number: US-TORRENT-00014273

PATIENT
  Age: 28 Year
  Sex: Female

DRUGS (2)
  1. TIOPRONIN [Suspect]
     Active Substance: TIOPRONIN
     Indication: Cystinuria
     Dosage: 300MG, THREE TIMES A DAY, BY MOUTH
     Route: 048
     Dates: start: 202412
  2. SLYND [Concomitant]
     Active Substance: DROSPIRENONE
     Indication: Product used for unknown indication
     Dosage: SLYND 4MG ONCE DAILY
     Route: 065

REACTIONS (1)
  - Exposure during pregnancy [Unknown]
